FAERS Safety Report 5772975-X (Version None)
Quarter: 2008Q2

REPORT INFORMATION
  Report Type: 
  Country: None (occurrence: None)
  Receive Date: 20080611
  Receipt Date: 20080528
  Transmission Date: 20081010
  Serious: Yes (Other)
  Sender: FDA-Public Use
  Company Number: 2008AL006017

PATIENT
  Age: 67 Year
  Sex: Male

DRUGS (2)
  1. DIGOXIN [Suspect]
     Indication: ARRHYTHMIA
     Dosage: 0.125MG DAILY PO
     Route: 048
  2. LANOXIN [Concomitant]

REACTIONS (6)
  - ANGINA PECTORIS [None]
  - ANOREXIA [None]
  - CARDIAC DISORDER [None]
  - FEELINGS OF WORTHLESSNESS [None]
  - IRRITABILITY [None]
  - MYOCARDIAL INFARCTION [None]
